FAERS Safety Report 18547488 (Version 1)
Quarter: 2020Q4

REPORT INFORMATION
  Report Type: Spontaneous
  Country: US (occurrence: US)
  Receive Date: 20201125
  Receipt Date: 20201125
  Transmission Date: 20210114
  Serious: No
  Sender: FDA-Public Use
  Company Number: US-PURACAP PHARMACEUTICAL LLC-2020EPC00286

PATIENT
  Age: 80 Year
  Sex: Male
  Weight: 109.75 kg

DRUGS (1)
  1. DUTASTERIDE. [Suspect]
     Active Substance: DUTASTERIDE
     Indication: PROSTATOMEGALY
     Dosage: 0.5 MG, 1X/DAY
     Route: 048
     Dates: start: 202003

REACTIONS (1)
  - Breast swelling [Not Recovered/Not Resolved]

NARRATIVE: CASE EVENT DATE: 202005
